FAERS Safety Report 4580205-X (Version None)
Quarter: 2005Q1

REPORT INFORMATION
  Report Type: 
  Country: None (occurrence: None)
  Receive Date: 20050214
  Receipt Date: 20050203
  Transmission Date: 20050727
  Serious: Yes (Hospitalization)
  Sender: FDA-Public Use
  Company Number: PHBS2005US01923

PATIENT
  Age: 49 Year
  Sex: Female

DRUGS (9)
  1. HYDROCHLOROTHIAZIDE [Concomitant]
     Dosage: 25 MG/D
     Route: 065
  2. GABAPENTIN [Concomitant]
     Dosage: 600 MG, BID
     Route: 065
  3. PROPRANOLOL [Concomitant]
     Dosage: 160 MG/D
     Route: 048
  4. FLUOXETINE [Suspect]
     Dosage: 10 MG/D
     Route: 065
  5. CARISOPRODOL [Concomitant]
     Dosage: 350 MG, QID
     Route: 048
  6. CARISOPRODOL [Concomitant]
     Dosage: 350 MG, TID
  7. MIRTAZAPINE [Concomitant]
     Dosage: 15 MG, QHS
     Route: 065
  8. LEVOFLOXACIN [Suspect]
     Dosage: 500 MG, QD
     Route: 065
  9. IMIPRAM TAB [Suspect]
     Dosage: 50 MG, QHS
     Route: 065

REACTIONS (15)
  - BACTERIAL PYELONEPHRITIS [None]
  - BLOOD POTASSIUM DECREASED [None]
  - CHEST DISCOMFORT [None]
  - DECREASED APPETITE [None]
  - DRUG INTERACTION [None]
  - DRUG INTERACTION POTENTIATION [None]
  - DYSPNOEA [None]
  - DYSURIA [None]
  - ELECTROCARDIOGRAM QT CORRECTED INTERVAL PROLONGED [None]
  - ELECTROCARDIOGRAM QT PROLONGED [None]
  - ESCHERICHIA URINARY TRACT INFECTION [None]
  - FLANK PAIN [None]
  - PAIN [None]
  - PYELONEPHRITIS [None]
  - PYREXIA [None]
